FAERS Safety Report 4654737-X (Version None)
Quarter: 2005Q2

REPORT INFORMATION
  Report Type: 
  Country: None (occurrence: None)
  Receive Date: 20050504
  Receipt Date: 20050428
  Transmission Date: 20051028
  Serious: Yes (Disabling)
  Sender: FDA-Public Use
  Company Number: 800360

PATIENT
  Age: 56 Year
  Sex: 0
  Weight: 80.9 kg

DRUGS (10)
  1. EXTRANEAL [Suspect]
     Indication: PERITONEAL DIALYSIS
     Dosage: 1500 ML; QD; INTRAPERITONEAL
     Route: 033
     Dates: start: 20040219
  2. EXTRANEAL [Suspect]
     Indication: RENAL FAILURE CHRONIC
     Dosage: 1500 ML; QD; INTRAPERITONEAL
     Route: 033
     Dates: start: 20040219
  3. DIANEAL PD [Concomitant]
  4. CALCIUM CARBONATE [Concomitant]
  5. AZULENE SULFONATE SOCIUM - L-GLUTAMINE [Concomitant]
  6. AMLODIPINE BESYLATE [Concomitant]
  7. CANDESARTAN CILEXETIL [Concomitant]
  8. CARVEDILOL [Concomitant]
  9. INSULIN HUMAN [Concomitant]
  10. EPOETIN BETA [Concomitant]

REACTIONS (2)
  - ANAEMIA [None]
  - CONDITION AGGRAVATED [None]
